FAERS Safety Report 7335398 (Version 3)
Quarter: 2013Q4

REPORT INFORMATION
  Report Type: Report from Study
  Country: JP (occurrence: JP)
  Receive Date: 20100329
  Receipt Date: 20131015
  Transmission Date: 20140711
  Serious: Yes (Hospitalization)
  Sender: FDA-Public Use
  Company Number: JP-ROCHE-632103

PATIENT
  Age: 59 Year
  Sex: Female

DRUGS (13)
  1. TOCILIZUMAB [Suspect]
     Indication: RHEUMATOID ARTHRITIS
     Route: 041
     Dates: start: 20090219, end: 20090219
  2. ERYTHROCIN [Suspect]
     Indication: SINUSITIS
     Route: 048
     Dates: start: 20090309, end: 20090331
  3. METHOTREXATE [Concomitant]
     Indication: RHEUMATOID ARTHRITIS
     Dosage: SATURDAY AND SUNDAY
     Route: 048
     Dates: start: 20080627, end: 20090302
  4. METHOTREXATE [Concomitant]
     Indication: RHEUMATOID ARTHRITIS
     Route: 048
     Dates: start: 20080820
  5. AZULFIDINE-EN [Concomitant]
     Indication: RHEUMATOID ARTHRITIS
     Dosage: DRUG NAME: SALAZOSULFAPYRIDINE
     Route: 048
  6. FOLIAMIN [Concomitant]
     Indication: PROPHYLAXIS
     Dosage: DOSE FORM: PERORAL AGENT
     Route: 048
     Dates: start: 20080627, end: 20090302
  7. CELECOXIB [Concomitant]
     Indication: RHEUMATOID ARTHRITIS
     Dosage: DRUG: CELECOX
     Route: 048
  8. GASTER D [Concomitant]
     Indication: PROPHYLAXIS
     Route: 048
  9. WARFARIN [Concomitant]
     Route: 048
  10. ARTIST [Concomitant]
     Indication: HYPERTENSION
     Route: 048
  11. LIPOVAS [Concomitant]
     Route: 048
  12. FERROMIA [Concomitant]
     Indication: ANAEMIA
     Dosage: DOSE FORM: PERORAL AGENT
     Route: 048
  13. PREDNISOLONE [Concomitant]

REACTIONS (7)
  - Blood pressure decreased [Recovered/Resolved]
  - Pyrexia [Recovered/Resolved]
  - Pyrexia [Recovered/Resolved]
  - Lymphadenopathy [Recovered/Resolved]
  - Hepatic function abnormal [Recovered/Resolved]
  - Erythema [Recovered/Resolved]
  - Sinusitis [Recovering/Resolving]
